FAERS Safety Report 22397912 (Version 1)
Quarter: 2023Q2

REPORT INFORMATION
  Report Type: Spontaneous
  Country: DE (occurrence: DE)
  Receive Date: 20230602
  Receipt Date: 20230602
  Transmission Date: 20230721
  Serious: Yes (Other)
  Sender: FDA-Public Use
  Company Number: DE-CELLTRION INC.-2023DE011302

PATIENT

DRUGS (12)
  1. RITUXIMAB [Suspect]
     Active Substance: RITUXIMAB
     Indication: Mucous membrane pemphigoid
  2. DEXAMETHASONE [Concomitant]
     Active Substance: DEXAMETHASONE
     Indication: Mucous membrane pemphigoid
     Dosage: 3 X 100 MG EACH; AT INITIATION OF RTX
  3. DEXAMETHASONE [Concomitant]
     Active Substance: DEXAMETHASONE
     Dosage: 3 X 100 MG EACH; UP TO 6 MONTHS AFTER RTX
  4. DEXAMETHASONE [Concomitant]
     Active Substance: DEXAMETHASONE
     Dosage: 3 X 100 MG EACH; MONTH 7 - 12 AFTER RTX
  5. MYCOPHENOLATE MOFETIL [Concomitant]
     Active Substance: MYCOPHENOLATE MOFETIL
     Indication: Mucous membrane pemphigoid
     Dosage: 2000 MG/D; AT INITIATION OF RTX
  6. MYCOPHENOLATE MOFETIL [Concomitant]
     Active Substance: MYCOPHENOLATE MOFETIL
     Dosage: 2000 MG/D; UP TO 6 MONTHS AFTER RTX
  7. MYCOPHENOLATE MOFETIL [Concomitant]
     Active Substance: MYCOPHENOLATE MOFETIL
     Dosage: 2000 MG/D; MONTH 7 - 12 AFTER RTX
  8. DAPSONE [Concomitant]
     Active Substance: DAPSONE
     Indication: Mucous membrane pemphigoid
     Dosage: 150 MG/D; AT INITIATION OF RTX
  9. DAPSONE [Concomitant]
     Active Substance: DAPSONE
     Dosage: 150 MG/D; UP TO 6 MONTHS AFTER RTX
  10. DAPSONE [Concomitant]
     Active Substance: DAPSONE
     Dosage: 150 MG/D; MONTH 7 - 12 AFTER RTX
  11. HUMAN IMMUNOGLOBULIN G [Concomitant]
     Active Substance: HUMAN IMMUNOGLOBULIN G
     Indication: Mucous membrane pemphigoid
     Dosage: UP TO 6 MONTHS AFTER RTX
  12. HUMAN IMMUNOGLOBULIN G [Concomitant]
     Active Substance: HUMAN IMMUNOGLOBULIN G
     Dosage: MONTH 7 - 12 AFTER RTX

REACTIONS (2)
  - Mucous membrane pemphigoid [Unknown]
  - Off label use [Unknown]
